FAERS Safety Report 10840872 (Version 1)
Quarter: 2015Q1

REPORT INFORMATION
  Report Type: Report from Study
  Country: US (occurrence: US)
  Receive Date: 20150220
  Receipt Date: 20150220
  Transmission Date: 20150721
  Serious: Yes (Other)
  Sender: FDA-Public Use
  Company Number: US-ABBVIE-14P-163-1250862-00

PATIENT
  Sex: Male
  Weight: 72.19 kg

DRUGS (2)
  1. HUMIRA [Suspect]
     Active Substance: ADALIMUMAB
     Indication: POLYARTHRITIS
     Dates: start: 2012
  2. HUMIRA [Suspect]
     Active Substance: ADALIMUMAB
     Dates: start: 201406

REACTIONS (10)
  - Fall [Unknown]
  - Joint swelling [Unknown]
  - Arthralgia [Unknown]
  - Rib fracture [Unknown]
  - Bone disorder [Unknown]
  - Polyarthritis [Unknown]
  - Pain in extremity [Unknown]
  - Upper limb fracture [Unknown]
  - Hand fracture [Unknown]
  - Weight decreased [Unknown]

NARRATIVE: CASE EVENT DATE: 2012
